FAERS Safety Report 16098810 (Version 1)
Quarter: 2019Q1

REPORT INFORMATION
  Report Type: Report from Study
  Country: None (occurrence: US)
  Receive Date: 20190321
  Receipt Date: 20190321
  Transmission Date: 20190418
  Serious: Yes (Other)
  Sender: FDA-Public Use
  Company Number: US-ABBVIE-18K-163-2590275-00

PATIENT
  Age: 52 Year
  Sex: Male

DRUGS (3)
  1. HUMIRA [Suspect]
     Active Substance: ADALIMUMAB
     Indication: CROHN^S DISEASE
     Route: 058
     Dates: start: 20190102
  2. HUMIRA [Suspect]
     Active Substance: ADALIMUMAB
     Indication: CROHN^S DISEASE
     Route: 058
     Dates: start: 20181205, end: 20181205
  3. HUMIRA [Suspect]
     Active Substance: ADALIMUMAB
     Dosage: DAY 15
     Route: 058
     Dates: start: 20181219, end: 20181219

REACTIONS (16)
  - Anal fissure [Not Recovered/Not Resolved]
  - Faeces hard [Unknown]
  - Insomnia [Not Recovered/Not Resolved]
  - Injection site bruising [Unknown]
  - Diarrhoea [Recovering/Resolving]
  - Nocturnal dyspnoea [Unknown]
  - Depressed mood [Unknown]
  - Constipation [Not Recovered/Not Resolved]
  - Sensation of foreign body [Unknown]
  - Abdominal pain upper [Not Recovered/Not Resolved]
  - Abdominal pain [Not Recovered/Not Resolved]
  - Rectal haemorrhage [Not Recovered/Not Resolved]
  - Skin mass [Unknown]
  - Injection site rash [Not Recovered/Not Resolved]
  - Decreased appetite [Unknown]
  - Rash [Recovered/Resolved]

NARRATIVE: CASE EVENT DATE: 201812
